FAERS Safety Report 5096003-7 (Version None)
Quarter: 2006Q3

REPORT INFORMATION
  Report Type: 
  Country: None (occurrence: None)
  Receive Date: 20060905
  Receipt Date: 20060821
  Transmission Date: 20061208
  Serious: Yes (Hospitalization)
  Sender: FDA-Public Use
  Company Number: JP-JPN-A200603231

PATIENT
  Age: 76 Year
  Sex: Female
  Weight: 43 kg

DRUGS (6)
  1. VALTREX [Suspect]
     Indication: HERPES ZOSTER
     Dosage: 1000MG PER DAY
     Route: 048
     Dates: start: 20060818, end: 20060819
  2. GANATON [Concomitant]
     Dosage: 3TAB PER DAY
     Route: 048
  3. NORVASC [Concomitant]
     Dosage: 1TAB PER DAY
     Route: 048
  4. PHOSBLOCK [Concomitant]
     Dosage: 6TAB PER DAY
     Route: 048
  5. LOXOPROFEN SODIUM [Concomitant]
     Route: 048
  6. MUCOSTA [Concomitant]
     Route: 048

REACTIONS (6)
  - DEPRESSED LEVEL OF CONSCIOUSNESS [None]
  - DIZZINESS [None]
  - DYSARTHRIA [None]
  - DYSKINESIA [None]
  - ENCEPHALOPATHY [None]
  - GAIT DISTURBANCE [None]
